FAERS Safety Report 21543754 (Version 1)
Quarter: 2022Q4

REPORT INFORMATION
  Report Type: Spontaneous
  Country: NO (occurrence: NO)
  Receive Date: 20221102
  Receipt Date: 20221102
  Transmission Date: 20230113
  Serious: Yes (Hospitalization, Disabling)
  Sender: FDA-Public Use
  Company Number: None

PATIENT
  Sex: Female

DRUGS (5)
  1. ESCITALOPRAM OXALATE [Suspect]
     Active Substance: ESCITALOPRAM OXALATE
     Indication: Depression
     Dosage: 5 MG (5MG X1)
     Route: 048
     Dates: start: 20211202, end: 20211207
  2. SPIKEVAX [Suspect]
     Active Substance: ELASOMERAN
     Indication: Immunisation
     Dosage: DOSE NO. IN SERIES: 1
     Dates: start: 20210916
  3. COMIRNATY [Suspect]
     Active Substance: TOZINAMERAN
     Indication: Immunisation
     Dosage: DOSE NO. IN SERIES: 2
     Dates: start: 20211111
  4. SYMBICORT [Concomitant]
     Active Substance: BUDESONIDE\FORMOTEROL FUMARATE DIHYDRATE
     Indication: Asthma
     Dosage: 1 X 2CONTINUED USE OF MEDICINAL PRODUCT
     Dates: start: 20150707
  5. EBASTINE [Concomitant]
     Active Substance: EBASTINE
     Indication: Hypersensitivity
     Dosage: 5 MG X 1CONTINUED USE OF MEDICINAL PRODUCT
     Dates: start: 20120626

REACTIONS (3)
  - Sjogren^s syndrome [Not Recovered/Not Resolved]
  - Parotitis [Not Recovered/Not Resolved]
  - Product administered to patient of inappropriate age [Unknown]

NARRATIVE: CASE EVENT DATE: 20210916
